FAERS Safety Report 7645258-0 (Version None)
Quarter: 2011Q3

REPORT INFORMATION
  Report Type: 
  Country: None (occurrence: None)
  Receive Date: 20110729
  Receipt Date: 20110701
  Transmission Date: 20111222
  Serious: Yes (Other)
  Sender: FDA-Public Use
  Company Number: US-BAYER-2011-058333

PATIENT
  Age: 43 Year
  Sex: Female
  Weight: 54 kg

DRUGS (3)
  1. VITAMIN D [Concomitant]
     Dosage: UNK
  2. REBIF [Suspect]
     Indication: MULTIPLE SCLEROSIS
     Dosage: 44 ?G, TIW
     Route: 058
     Dates: start: 20101030
  3. ALEVE (CAPLET) [Suspect]
     Indication: PREMEDICATION
     Dosage: UNK

REACTIONS (7)
  - FAECES DISCOLOURED [None]
  - BURNING SENSATION [None]
  - FATIGUE [None]
  - DYSPEPSIA [None]
  - ABDOMINAL PAIN UPPER [None]
  - GASTRIC ULCER HAEMORRHAGE [None]
  - GASTRIC ULCER [None]
